FAERS Safety Report 25408424 (Version 1)
Quarter: 2025Q2

REPORT INFORMATION
  Report Type: Spontaneous
  Country: US (occurrence: US)
  Receive Date: 20250606
  Receipt Date: 20250606
  Transmission Date: 20250716
  Serious: Yes (Other)
  Sender: Harrow Health
  Company Number: US-HARROW-HAR-2025-US-00212

PATIENT
  Age: 58 Year
  Sex: Female

DRUGS (11)
  1. VIGAMOX [Suspect]
     Active Substance: MOXIFLOXACIN HYDROCHLORIDE
     Route: 065
  2. povidone iodine 5% [Concomitant]
  3. PROPARACAINE [Concomitant]
     Active Substance: PROPARACAINE
  4. TROPICAMIDE [Concomitant]
     Active Substance: TROPICAMIDE
  5. PHENYLEPHRINE [Concomitant]
     Active Substance: PHENYLEPHRINE
  6. KETOROLAC [Concomitant]
     Active Substance: KETOROLAC TROMETHAMINE
  7. PREDNISONE [Concomitant]
     Active Substance: PREDNISONE
  8. BROMFENAC [Concomitant]
     Active Substance: BROMFENAC
  9. LATANOPROST [Concomitant]
     Active Substance: LATANOPROST
  10. VANCOMYCIN [Concomitant]
     Active Substance: VANCOMYCIN
     Route: 057
  11. CEFTAZIDIME [Concomitant]
     Active Substance: CEFTAZIDIME
     Route: 057

REACTIONS (1)
  - Endophthalmitis [Recovered/Resolved]

NARRATIVE: CASE EVENT DATE: 20250405
